FAERS Safety Report 12378970 (Version 1)
Quarter: 2016Q2

REPORT INFORMATION
  Report Type: Spontaneous
  Country: FR (occurrence: FR)
  Receive Date: 20160517
  Receipt Date: 20160517
  Transmission Date: 20160815
  Serious: Yes (Hospitalization, Other)
  Sender: FDA-Public Use
  Company Number: FR-PFIZER INC-2016254995

PATIENT
  Age: 37 Year
  Sex: Male

DRUGS (7)
  1. CREON [Concomitant]
     Active Substance: PANCRELIPASE AMYLASE\PANCRELIPASE LIPASE\PANCRELIPASE PROTEASE
     Dosage: UNK
  2. VENLAFAXINE WYETH LP [Suspect]
     Active Substance: VENLAFAXINE HYDROCHLORIDE
     Dosage: AT REDUCED DOSAGE
     Route: 048
  3. DIAZEPAM. [Suspect]
     Active Substance: DIAZEPAM
     Dosage: 20 MG, 1X/DAY
     Route: 048
     Dates: start: 2015, end: 20160329
  4. LORAZEPAM MERCK [Suspect]
     Active Substance: LORAZEPAM
     Dosage: 7.5 MG, 1X/DAY
     Route: 048
     Dates: start: 2015
  5. LAMOTRIGINE. [Concomitant]
     Active Substance: LAMOTRIGINE
     Dosage: UNK
  6. VENLAFAXINE WYETH LP [Suspect]
     Active Substance: VENLAFAXINE HYDROCHLORIDE
     Indication: DEPRESSION
     Dosage: 150 MG, 1X/DAY
     Route: 048
     Dates: start: 201505, end: 20160329
  7. ACAMPROSATE [Suspect]
     Active Substance: ACAMPROSATE
     Indication: ALCOHOL DETOXIFICATION
     Dosage: 666 MG, 3X/DAY
     Route: 048
     Dates: end: 20160329

REACTIONS (3)
  - Suicide attempt [Recovered/Resolved]
  - Toxicity to various agents [Unknown]
  - Wernicke^s encephalopathy [Unknown]

NARRATIVE: CASE EVENT DATE: 20160329
